FAERS Safety Report 8580492-7 (Version None)
Quarter: 2012Q3

REPORT INFORMATION
  Report Type: 
  Country: None (occurrence: None)
  Receive Date: 20120808
  Receipt Date: 20120801
  Transmission Date: 20120928
  Serious: Yes (Other)
  Sender: FDA-Public Use
  Company Number: JP-VERTEX PHARMACEUTICALS INC.-AE-2012-009363

PATIENT
  Age: 61 Year
  Sex: Female

DRUGS (14)
  1. RIBAVIRIN [Concomitant]
     Indication: HEPATITIS C
     Route: 048
     Dates: start: 20120413, end: 20120606
  2. PEGINTERFERON ALFA-2B [Concomitant]
     Indication: HEPATITIS C
     Route: 058
     Dates: start: 20120413, end: 20120425
  3. PEGINTERFERON ALFA-2B [Concomitant]
     Route: 058
     Dates: start: 20120626
  4. MOTILIUM [Concomitant]
     Route: 048
  5. LORFENAMIN [Concomitant]
     Route: 048
  6. RIKKUNSHITO [Concomitant]
     Route: 048
  7. EPADEL [Concomitant]
     Route: 048
  8. L-CARTIN [Concomitant]
     Route: 048
  9. TELAVIC (TELAPREVIR) [Suspect]
     Indication: HEPATITIS C
     Route: 048
     Dates: start: 20120413, end: 20120607
  10. CMCP [Concomitant]
     Route: 048
     Dates: start: 20120413
  11. TELAVIC (TELAPREVIR) [Suspect]
     Route: 048
     Dates: start: 20120626, end: 20120724
  12. RIBAVIRIN [Concomitant]
     Dates: start: 20120626
  13. PEGINTERFERON ALFA-2B [Concomitant]
     Route: 058
     Dates: start: 20120426, end: 20120606
  14. MOTILIUM [Concomitant]
     Route: 048
     Dates: start: 20120413

REACTIONS (5)
  - DECREASED APPETITE [None]
  - WHITE BLOOD CELL COUNT DECREASED [None]
  - ANAEMIA [None]
  - RENAL IMPAIRMENT [None]
  - PLATELET COUNT DECREASED [None]
